FAERS Safety Report 8815243 (Version 2)
Quarter: 2012Q4

REPORT INFORMATION
  Report Type: 
  Country: US (occurrence: US)
  Receive Date: 20120928
  Receipt Date: 20121018
  Transmission Date: 20130627
  Serious: Yes (Other)
  Sender: FDA-Public Use
  Company Number: US-TEVA-360519USA

PATIENT
  Age: 58 Year
  Sex: Female

DRUGS (7)
  1. COPAXONE [Suspect]
     Indication: MULTIPLE SCLEROSIS
     Dosage: 20 Milligram Daily;
     Route: 058
  2. AMANTADINE [Concomitant]
     Dosage: 200 Milligram Daily;
  3. METOPROLOL [Concomitant]
     Dosage: 50 Milligram Daily;
  4. TREXIMET [Concomitant]
  5. TOPAMAX [Concomitant]
  6. VENLAFAXINE [Concomitant]
     Indication: DEPRESSION
  7. BACLOFEN [Concomitant]
     Indication: MUSCLE RELAXANT THERAPY
     Dosage: 30 Milligram Daily;

REACTIONS (1)
  - Systemic lupus erythematosus [Not Recovered/Not Resolved]
